FAERS Safety Report 14525368 (Version 1)
Quarter: 2018Q1

REPORT INFORMATION
  Report Type: Spontaneous
  Country: US (occurrence: US)
  Receive Date: 20180213
  Receipt Date: 20180213
  Transmission Date: 20180509
  Serious: No
  Sender: FDA-Public Use
  Company Number: US-BIOGEN-2018BI00519387

PATIENT
  Age: 47 Year
  Sex: Male

DRUGS (1)
  1. SPINRAZA [Suspect]
     Active Substance: NUSINERSEN
     Indication: SPINAL MUSCULAR ATROPHY
     Dosage: LD: 3 LOADING DOSES OF 12 MILLIGRAMS, 1 PER 14 DAYS FOLLOWED BY A 4TH LOADING DOSE OF 12 MILLIGRA...
     Route: 037
     Dates: start: 20170915

REACTIONS (1)
  - Pain [Unknown]

NARRATIVE: CASE EVENT DATE: 20170916
